FAERS Safety Report 19415290 (Version 2)
Quarter: 2021Q3

REPORT INFORMATION
  Report Type: Report from Study
  Country: CA (occurrence: CA)
  Receive Date: 20210614
  Receipt Date: 20210825
  Transmission Date: 20211014
  Serious: Yes (Other)
  Sender: FDA-Public Use
  Company Number: CA-OTSUKA-2020_031358

PATIENT
  Sex: Male

DRUGS (1)
  1. CEDAZURIDINE AND DECITABINE [Suspect]
     Active Substance: CEDAZURIDINE\DECITABINE
     Indication: MYELODYSPLASTIC SYNDROME
     Dosage: 35/100MG (35 MG DECITABINE AND 100 MG CEDAZURIDINE), QD 1?5 DAYS EVERY 28 DAY CYCLE
     Route: 065
     Dates: start: 20201120

REACTIONS (7)
  - White blood cell count decreased [Recovering/Resolving]
  - Neutropenia [Unknown]
  - Fall [Recovered/Resolved]
  - Blood count abnormal [Not Recovered/Not Resolved]
  - Head injury [Recovered/Resolved]
  - Platelet count decreased [Not Recovered/Not Resolved]
  - Red blood cell count decreased [Recovering/Resolving]
